FAERS Safety Report 6139027-0 (Version None)
Quarter: 2009Q1

REPORT INFORMATION
  Report Type: 
  Country: None (occurrence: None)
  Receive Date: 20090324
  Receipt Date: 20090316
  Transmission Date: 20090719
  Serious: Yes (Hospitalization)
  Sender: FDA-Public Use
  Company Number: 430009M08USA

PATIENT
  Age: 26 Year
  Sex: Male
  Weight: 64 kg

DRUGS (4)
  1. NOVANTRONE [Suspect]
     Indication: ACUTE MYELOID LEUKAEMIA
     Dosage: 13.8 MG, INTRAVENOUS (NOT OTHERWISE SPECIFIED)
     Route: 042
     Dates: start: 20080611, end: 20080615
  2. CEP-701 (ALL OTHER THERAPEUTIC PRODUCTS) [Suspect]
     Indication: ACUTE MYELOID LEUKAEMIA
     Dosage: 80 MG, 2 IN 1 DAYS, ORAL
     Route: 048
     Dates: start: 20080617, end: 20080618
  3. ETOPOSIDE [Suspect]
     Indication: ACUTE MYELOID LEUKAEMIA
     Dosage: 172 MG
     Dates: start: 20080611, end: 20080615
  4. CYTARABINE [Suspect]
     Indication: ACUTE MYELOID LEUKAEMIA
     Dosage: 1.7 G
     Dates: start: 20080611, end: 20080615

REACTIONS (1)
  - FEBRILE NEUTROPENIA [None]
